FAERS Safety Report 9235854 (Version 1)
Quarter: 2013Q2

REPORT INFORMATION
  Report Type: Spontaneous
  Country: US (occurrence: US)
  Receive Date: 20130417
  Receipt Date: 20130417
  Transmission Date: 20140414
  Serious: Yes (Other)
  Sender: FDA-Public Use
  Company Number: US-BAYER-2013-047354

PATIENT
  Age: 60 Year
  Sex: Female
  Weight: 73 kg

DRUGS (6)
  1. BETASERON [Suspect]
     Dosage: 0.25 MG, QOD
     Route: 058
  2. COPAXONE [Concomitant]
  3. POTASSIUM [Concomitant]
  4. B COMPLEX [B3,B6,B2,B1 HCL] [Concomitant]
     Dosage: 1 DF, QD
  5. CLARITIN [Concomitant]
  6. ACETAMINOPHEN [Concomitant]

REACTIONS (3)
  - Urinary tract infection [Recovering/Resolving]
  - Local swelling [Recovering/Resolving]
  - Urticaria [Recovering/Resolving]
